FAERS Safety Report 4982861-0 (Version None)
Quarter: 2006Q2

REPORT INFORMATION
  Report Type: 
  Country: None (occurrence: None)
  Receive Date: 20060420
  Receipt Date: 20060412
  Transmission Date: 20061013
  Serious: Yes (Other)
  Sender: FDA-Public Use
  Company Number: 2006050192

PATIENT
  Age: 54 Year
  Sex: Male
  Weight: 136.0791 kg

DRUGS (4)
  1. BENADRYL [Suspect]
     Indication: SLEEP DISORDER
     Dosage: 20 ULTRATABS ONCE A DAY, ORAL
     Route: 048
  2. DIURETICS (DIURETICS) [Concomitant]
  3. TRAMADOL HCL [Concomitant]
  4. METFORMIN HCL [Concomitant]

REACTIONS (3)
  - EYE MOVEMENT DISORDER [None]
  - INSOMNIA [None]
  - VISION BLURRED [None]
